FAERS Safety Report 7486569-1 (Version None)
Quarter: 2011Q2

REPORT INFORMATION
  Report Type: 
  Country: None (occurrence: None)
  Receive Date: 20110517
  Receipt Date: 20110511
  Transmission Date: 20111010
  Serious: Yes (Other)
  Sender: FDA-Public Use
  Company Number: IT-ABBOTT-11P-083-0697724-00

PATIENT
  Age: 45 Year
  Sex: Male
  Weight: 80 kg

DRUGS (5)
  1. METHYLPREDNISOLONE [Concomitant]
     Indication: NEPHROTIC SYNDROME
     Dosage: 0.5 MG/KG, 3 PULSES (1G EACH)
  2. CYCLOSPORINE [Suspect]
     Indication: FOCAL SEGMENTAL GLOMERULOSCLEROSIS
  3. CYCLOSPORINE [Suspect]
     Indication: NEPHROTIC SYNDROME
  4. PREDNISONE [Concomitant]
     Indication: NEPHROTIC SYNDROME
     Dosage: 10 MG/DAY
     Route: 048
  5. CYCLOPHOSPHAMIDE [Concomitant]
     Indication: NEPHROTIC SYNDROME
     Route: 048

REACTIONS (5)
  - HYPERTENSION [None]
  - THROMBOCYTOPENIA [None]
  - RENAL IMPAIRMENT [None]
  - HAEMOLYTIC URAEMIC SYNDROME [None]
  - HAEMOLYTIC ANAEMIA [None]
